FAERS Safety Report 24313775 (Version 5)
Quarter: 2025Q1

REPORT INFORMATION
  Report Type: Report from Study
  Country: FR (occurrence: FR)
  Receive Date: 20240912
  Receipt Date: 20250331
  Transmission Date: 20250409
  Serious: Yes (Hospitalization)
  Sender: BIOGEN
  Company Number: FR-BIOGEN-2024BI01268712

PATIENT
  Age: 40 Year
  Sex: Female
  Weight: 84 kg

DRUGS (15)
  1. OMAVELOXOLONE [Suspect]
     Active Substance: OMAVELOXOLONE
     Indication: Friedreich^s ataxia
     Dosage: 3 CAPSULES OF 50MG, SINGLE ADMIN
     Route: 050
     Dates: start: 20240322
  2. OMAVELOXOLONE [Suspect]
     Active Substance: OMAVELOXOLONE
     Route: 050
     Dates: start: 20240314, end: 20240905
  3. OMAVELOXOLONE [Suspect]
     Active Substance: OMAVELOXOLONE
     Route: 050
     Dates: end: 20250306
  4. GABAPENTIN [Concomitant]
     Active Substance: GABAPENTIN
     Indication: Neuropathy peripheral
     Route: 050
     Dates: start: 20240606, end: 20240606
  5. GABAPENTIN [Concomitant]
     Active Substance: GABAPENTIN
     Dosage: MORNING AND EVENING
     Route: 050
     Dates: start: 20240607, end: 20240607
  6. GABAPENTIN [Concomitant]
     Active Substance: GABAPENTIN
     Dosage: MORNING, NOON, AND EVENING
     Route: 050
     Dates: start: 20240608, end: 202409
  7. NOVORAPID [Concomitant]
     Active Substance: INSULIN ASPART
     Indication: Product used for unknown indication
     Route: 050
     Dates: start: 20120209
  8. XARELTO [Concomitant]
     Active Substance: RIVAROXABAN
     Indication: Atrial fibrillation
     Route: 050
     Dates: start: 20131101
  9. IDEBENONE [Concomitant]
     Active Substance: IDEBENONE
     Indication: Product used for unknown indication
     Route: 050
     Dates: start: 20140101
  10. VESICARE [Concomitant]
     Active Substance: SOLIFENACIN SUCCINATE
     Indication: Product used for unknown indication
     Route: 050
     Dates: start: 20150401
  11. BISOPROLOL FUMARATE\PERINDOPRIL ARGININE [Concomitant]
     Active Substance: BISOPROLOL FUMARATE\PERINDOPRIL ARGININE
     Indication: Product used for unknown indication
     Dosage: 5MG/10MG
     Route: 050
     Dates: start: 20231001
  12. DAPAGLIFLOZIN [Concomitant]
     Active Substance: DAPAGLIFLOZIN
     Indication: Product used for unknown indication
     Route: 050
     Dates: start: 20231001
  13. ENTRESTO [Concomitant]
     Active Substance: SACUBITRIL\VALSARTAN
     Indication: Hypertrophic cardiomyopathy
     Route: 050
  14. BISOPROLOL [Concomitant]
     Active Substance: BISOPROLOL
     Indication: Atrial fibrillation
     Route: 050
  15. BACLOFEN [Concomitant]
     Active Substance: BACLOFEN
     Indication: Product used for unknown indication
     Route: 050

REACTIONS (7)
  - Generalised oedema [Recovered/Resolved]
  - Cardiac failure [Recovered/Resolved]
  - Right ventricular failure [Recovered/Resolved]
  - Alanine aminotransferase abnormal [Recovered/Resolved]
  - Aspartate aminotransferase abnormal [Recovered/Resolved]
  - Gamma-glutamyltransferase abnormal [Not Recovered/Not Resolved]
  - Neuropathy peripheral [Unknown]

NARRATIVE: CASE EVENT DATE: 20240430
